FAERS Safety Report 20318630 (Version 2)
Quarter: 2022Q2

REPORT INFORMATION
  Report Type: Report from Study
  Country: US (occurrence: US)
  Receive Date: 20220110
  Receipt Date: 20220620
  Transmission Date: 20220721
  Serious: Yes (Death, Other)
  Sender: FDA-Public Use
  Company Number: US-EXELIXIS-XL18422047918

PATIENT

DRUGS (7)
  1. CABOZANTINIB [Suspect]
     Active Substance: CABOZANTINIB
     Indication: Non-small cell lung cancer
     Dosage: 60 MG, QD
     Route: 048
     Dates: start: 20210901, end: 20211005
  2. CABOZANTINIB [Suspect]
     Active Substance: CABOZANTINIB
     Dosage: 40 MG, QD
     Route: 048
     Dates: start: 20211112, end: 20211215
  3. METOPROLOL [Concomitant]
     Active Substance: METOPROLOL
  4. LISINOPRIL [Concomitant]
     Active Substance: LISINOPRIL
  5. LEVOTHYROXINE [Concomitant]
     Active Substance: LEVOTHYROXINE
  6. MORPHINE [Concomitant]
     Active Substance: MORPHINE
  7. CLARITIN [Concomitant]
     Active Substance: LORATADINE

REACTIONS (3)
  - Death [Fatal]
  - Hypertension [Unknown]
  - Weight decreased [Unknown]

NARRATIVE: CASE EVENT DATE: 20211007
